FAERS Safety Report 13383063 (Version 1)
Quarter: 2017Q1

REPORT INFORMATION
  Report Type: Spontaneous
  Country: US (occurrence: US)
  Receive Date: 20170329
  Receipt Date: 20170329
  Transmission Date: 20170429
  Serious: Yes (Other)
  Sender: FDA-Public Use
  Company Number: US-ELI_LILLY_AND_COMPANY-US201608000455

PATIENT
  Sex: Male

DRUGS (1)
  1. CYMBALTA [Suspect]
     Active Substance: DULOXETINE HYDROCHLORIDE
     Indication: PRODUCT USED FOR UNKNOWN INDICATION
     Dosage: UNK UNK, UNKNOWN
     Route: 065

REACTIONS (17)
  - Suicidal ideation [Unknown]
  - Pyrexia [Unknown]
  - Vomiting [Unknown]
  - Depression [Unknown]
  - Vision blurred [Unknown]
  - Sexual dysfunction [Unknown]
  - Insomnia [Unknown]
  - Arthralgia [Unknown]
  - Abdominal pain upper [Unknown]
  - Nausea [Unknown]
  - Chills [Unknown]
  - Drug withdrawal syndrome [Unknown]
  - Back pain [Unknown]
  - Nightmare [Unknown]
  - Burning sensation [Unknown]
  - Anxiety [Unknown]
  - Weight increased [Unknown]
